FAERS Safety Report 21595355 (Version 1)
Quarter: 2022Q4

REPORT INFORMATION
  Report Type: Spontaneous
  Country: US (occurrence: None)
  Receive Date: 20221114
  Receipt Date: 20221114
  Transmission Date: 20230113
  Serious: Yes (Other)
  Sender: FDA-Public Use
  Company Number: None

PATIENT
  Age: 42 Year
  Sex: Female
  Weight: 60.75 kg

DRUGS (3)
  1. KLISYRI [Suspect]
     Active Substance: TIRBANIBULIN
     Indication: Solar lentigo
     Dates: start: 20221105, end: 20221109
  2. VITAMIN C [Concomitant]
     Active Substance: ASCORBIC ACID
  3. Magesium [Concomitant]

REACTIONS (1)
  - Second degree chemical burn of skin [None]

NARRATIVE: CASE EVENT DATE: 20221110
